FAERS Safety Report 4336213-7 (Version None)
Quarter: 2004Q2

REPORT INFORMATION
  Report Type: 
  Country: None (occurrence: None)
  Receive Date: 20040406
  Receipt Date: 20040329
  Transmission Date: 20050107
  Serious: Yes (Death, Life-Threatening, Hospitalization)
  Sender: FDA-Public Use
  Company Number: 2004PK00051

PATIENT
  Age: 70 Year
  Sex: Male
  Weight: 80 kg

DRUGS (11)
  1. NEXIUM [Suspect]
     Dosage: 40 MG DAILY PO
     Route: 048
     Dates: start: 20010425, end: 20010504
  2. ANTRA I.V. [Suspect]
     Dates: start: 20010504, end: 20010514
  3. OMEPRAZOLE [Suspect]
     Dosage: 20 MG DAILY PO
     Route: 048
     Dates: start: 20010515, end: 20040601
  4. CLORAZEPATE DIPOTASSIUM [Suspect]
     Indication: PSYCHOTIC DISORDER
     Dosage: 50 MG Q6H PO
     Route: 048
     Dates: start: 20010417, end: 20010424
  5. CATAPRESAN [Concomitant]
  6. VOLTAREN RESINATE ^NOVARTIS^ [Concomitant]
  7. SOSTRIL [Concomitant]
  8. LORZAAR PLUS [Concomitant]
  9. ACC LONG [Concomitant]
  10. EUGLALAC [Concomitant]
  11. EMBOLEX [Concomitant]

REACTIONS (16)
  - ATAXIA [None]
  - BLOOD PRESSURE DECREASED [None]
  - CARDIOVASCULAR DISORDER [None]
  - COMA [None]
  - CONFUSIONAL STATE [None]
  - DEPRESSED LEVEL OF CONSCIOUSNESS [None]
  - DIFFICULTY IN WALKING [None]
  - DISORIENTATION [None]
  - DRUG INTERACTION [None]
  - DRUG TOXICITY [None]
  - FALL [None]
  - FATIGUE [None]
  - MULTI-ORGAN FAILURE [None]
  - PNEUMONIA [None]
  - SOMNOLENCE [None]
  - SPUTUM RETENTION [None]
